FAERS Safety Report 8299420-7 (Version None)
Quarter: 2012Q2

REPORT INFORMATION
  Report Type: 
  Country: None (occurrence: None)
  Receive Date: 20120419
  Receipt Date: 20120411
  Transmission Date: 20120825
  Serious: Yes (Other)
  Sender: FDA-Public Use
  Company Number: US-FRI-1000020614

PATIENT
  Sex: Female
  Weight: 69 kg

DRUGS (4)
  1. SAVELLA [Suspect]
     Indication: FIBROMYALGIA
     Dosage: 100 MG
     Route: 048
  2. VITAMIN B-12 [Concomitant]
     Indication: GASTRIC BYPASS
  3. PROZAC [Concomitant]
     Indication: DEPRESSION
     Dosage: 40 MG
     Route: 048
  4. PRENATAL VITAMIN WITH FOLIC ACID [Concomitant]
     Indication: PREGNANCY
     Dosage: 1 PILL
     Route: 048
     Dates: start: 20110401

REACTIONS (2)
  - HELLP SYNDROME [None]
  - MATERNAL EXPOSURE DURING PREGNANCY [None]
